FAERS Safety Report 5023123-5 (Version None)
Quarter: 2006Q2

REPORT INFORMATION
  Report Type: 
  Country: None (occurrence: None)
  Receive Date: 20060605
  Receipt Date: 20060519
  Transmission Date: 20061013
  Serious: Yes (Death)
  Sender: FDA-Public Use
  Company Number: CH200605004764

PATIENT
  Age: 38 Year
  Sex: Male

DRUGS (3)
  1. ZYPREXA [Suspect]
     Indication: SCHIZOTYPAL PERSONALITY DISORDER
     Dosage: 20 MG, DAILY (1/D), ORAL
     Route: 048
     Dates: start: 20021001
  2. HALDOL DECANOATE (HALOPERIDOL DECANOATE) [Concomitant]
  3. PRAZINE /NET/ (PROMAZINE HYDROCHLORIDE) [Concomitant]

REACTIONS (7)
  - DYSPNOEA [None]
  - DYSTONIA [None]
  - INFLUENZA [None]
  - LARYNGEAL OEDEMA [None]
  - LOSS OF CONSCIOUSNESS [None]
  - PHARYNGOLARYNGEAL PAIN [None]
  - RESPIRATORY DISTRESS [None]
